FAERS Safety Report 10058619 (Version 1)
Quarter: 2014Q2

REPORT INFORMATION
  Report Type: Spontaneous
  Country: FR (occurrence: FR)
  Receive Date: 20140404
  Receipt Date: 20140404
  Transmission Date: 20141212
  Serious: Yes (Hospitalization)
  Sender: FDA-Public Use
  Company Number: FR-JNJFOC-20140319510

PATIENT
  Age: 85 Year
  Sex: Female

DRUGS (9)
  1. XARELTO [Suspect]
     Indication: CARDIOVASCULAR EVENT PROPHYLAXIS
     Route: 048
     Dates: start: 20130905, end: 20130916
  2. PRADAXA [Suspect]
     Indication: CARDIOVASCULAR EVENT PROPHYLAXIS
     Route: 048
     Dates: start: 201306, end: 20130905
  3. LEVOPHTA [Concomitant]
     Route: 047
     Dates: end: 201306
  4. OPTICRON [Concomitant]
     Route: 047
  5. LASILIX [Concomitant]
     Route: 048
  6. FLUINDIONE [Concomitant]
     Route: 048
     Dates: start: 20130916
  7. LOVENOX [Concomitant]
     Indication: VENOUS THROMBOSIS
     Dosage: 0.6
     Route: 058
     Dates: start: 20131004
  8. LOVENOX [Concomitant]
     Indication: VENOUS THROMBOSIS
     Dosage: 0.6
     Route: 058
     Dates: start: 20130916, end: 20130919
  9. BISOPROLOL [Concomitant]
     Route: 048
     Dates: start: 201306

REACTIONS (2)
  - Venous thrombosis [Recovered/Resolved]
  - Drug ineffective [Recovered/Resolved with Sequelae]
